FAERS Safety Report 10031360 (Version 1)
Quarter: 2014Q1

REPORT INFORMATION
  Report Type: Spontaneous
  Country: US (occurrence: US)
  Receive Date: 20140324
  Receipt Date: 20140324
  Transmission Date: 20141002
  Serious: Yes (Death)
  Sender: FDA-Public Use
  Company Number: US-CELGENEUS-163-21880-14032449

PATIENT
  Age: 79 Year
  Sex: Male
  Weight: 100.33 kg

DRUGS (1)
  1. REVLIMID [Suspect]
     Indication: WALDENSTROM^S MACROGLOBULINAEMIA
     Dosage: 10 MILLIGRAM
     Dates: start: 20130805, end: 20140303

REACTIONS (1)
  - Death [Fatal]
